FAERS Safety Report 4487610-0 (Version None)
Quarter: 2004Q4

REPORT INFORMATION
  Report Type: 
  Country: None (occurrence: None)
  Receive Date: 20041025
  Receipt Date: 20041011
  Transmission Date: 20050328
  Serious: Yes (Disabling)
  Sender: FDA-Public Use
  Company Number: 2004-BP-08807BP

PATIENT
  Age: 41 Year
  Sex: Male

DRUGS (4)
  1. AGGRENOX [Suspect]
     Indication: CEREBROVASCULAR ACCIDENT PROPHYLAXIS
     Dosage: 25MG/200MG 1 CAPSULE BID), PO
     Route: 048
     Dates: start: 20001001, end: 20040915
  2. INSULIN [Concomitant]
  3. SYNTHROID [Concomitant]
  4. LIPITOR [Concomitant]

REACTIONS (3)
  - ALOPECIA [None]
  - DEAFNESS NEUROSENSORY [None]
  - HYPOACUSIS [None]
